FAERS Safety Report 9080887 (Version 1)
Quarter: 2013Q1

REPORT INFORMATION
  Report Type: Report from Study
  Country: US (occurrence: US)
  Receive Date: 20130130
  Receipt Date: 20130130
  Transmission Date: 20140127
  Serious: No
  Sender: FDA-Public Use
  Company Number: US-ABBOTT-12P-163-0960821-00

PATIENT
  Age: 37 Year
  Sex: Female
  Weight: 51.76 kg

DRUGS (10)
  1. HUMIRA 40 MG/0.8 ML PEN [Suspect]
     Indication: CROHN^S DISEASE
     Dates: start: 20120425, end: 20120509
  2. HUMIRA 40 MG/ 0.8 ML PRE-FILLED SYRINGE [Suspect]
     Indication: CROHN^S DISEASE
     Dates: start: 20120509
  3. TYLENOL WITH CODEINE [Concomitant]
     Indication: DYSMENORRHOEA
  4. ORTHRAEVRA [Concomitant]
     Indication: CONTRACEPTION
  5. PROPANOLOL [Concomitant]
     Indication: ANXIETY
  6. PROPANOLOL [Concomitant]
     Indication: HYPERTENSION
  7. TRIAMETRENE [Concomitant]
     Indication: HYPERTENSION
  8. B COMPLEX VITAMIN [Concomitant]
     Indication: VITAMIN SUPPLEMENTATION
  9. FISH OIL [Concomitant]
     Indication: SUPPLEMENTATION THERAPY
  10. MERCAPTOPURINE [Concomitant]
     Indication: CROHN^S DISEASE

REACTIONS (9)
  - Muscular weakness [Not Recovered/Not Resolved]
  - Muscular weakness [Not Recovered/Not Resolved]
  - Headache [Recovered/Resolved]
  - Headache [Not Recovered/Not Resolved]
  - Musculoskeletal stiffness [Recovered/Resolved]
  - Gait disturbance [Recovered/Resolved]
  - Dysmenorrhoea [Unknown]
  - Gait disturbance [Recovered/Resolved]
  - Sensation of heaviness [Recovered/Resolved]
